FAERS Safety Report 22662696 (Version 3)
Quarter: 2023Q4

REPORT INFORMATION
  Report Type: Spontaneous
  Country: HK (occurrence: HK)
  Receive Date: 20230702
  Receipt Date: 20231127
  Transmission Date: 20240110
  Serious: Yes (Life-Threatening, Hospitalization, Other)
  Sender: FDA-Public Use
  Company Number: HK-MLMSERVICE-20230614-4347151-1

PATIENT
  Age: 59 Year
  Sex: Male

DRUGS (5)
  1. METFORMIN [Suspect]
     Active Substance: METFORMIN HYDROCHLORIDE
     Indication: Type 2 diabetes mellitus
     Dosage: 500 MILLIGRAM, TWO TIMES A DAY
     Route: 065
  2. AMLODIPINE [Concomitant]
     Active Substance: AMLODIPINE BESYLATE
     Indication: Hypertension
     Dosage: UNK
     Route: 065
  3. ATORVASTATIN [Concomitant]
     Active Substance: ATORVASTATIN
     Indication: Hyperlipidaemia
     Dosage: UNK
     Route: 065
  4. LOSARTAN [Concomitant]
     Active Substance: LOSARTAN
     Indication: Hypertension
     Dosage: UNK
     Route: 065
  5. PRAZOSIN [Concomitant]
     Active Substance: PRAZOSIN
     Indication: Hypertension
     Dosage: UNK
     Route: 065

REACTIONS (14)
  - Acute coronary syndrome [Recovered/Resolved]
  - Acute myocardial infarction [Recovered/Resolved]
  - Cardiogenic shock [Recovered/Resolved]
  - Catheter site infection [Recovered/Resolved]
  - Colitis [Recovered/Resolved]
  - Enterococcal infection [Recovered/Resolved]
  - Escherichia infection [Recovered/Resolved]
  - Haemodynamic instability [Recovered/Resolved]
  - Hypotension [Recovered/Resolved]
  - Lactic acidosis [Recovered/Resolved]
  - Left ventricular failure [Recovered/Resolved]
  - Renal impairment [Recovered/Resolved]
  - Respiratory distress [Recovered/Resolved]
  - Vasoplegia syndrome [Recovered/Resolved]
